FAERS Safety Report 16926139 (Version 1)
Quarter: 2019Q4

REPORT INFORMATION
  Report Type: Spontaneous
  Country: US (occurrence: US)
  Receive Date: 20191016
  Receipt Date: 20191016
  Transmission Date: 20200122
  Serious: No
  Sender: FDA-Public Use
  Company Number: US-VERTEX PHARMACEUTICALS-2019-009285

PATIENT
  Sex: Male
  Weight: 25 kg

DRUGS (12)
  1. URSODIOL. [Concomitant]
     Active Substance: URSODIOL
  2. VITAMIN E [Concomitant]
     Active Substance: .ALPHA.-TOCOPHEROL
  3. PULMOZYME [Concomitant]
     Active Substance: DORNASE ALFA
  4. PHYTONADIONE. [Concomitant]
     Active Substance: PHYTONADIONE
  5. VITAMIN D2 [Concomitant]
     Active Substance: ERGOCALCIFEROL
  6. HYPERSAL [Concomitant]
     Active Substance: SODIUM CHLORIDE
  7. SYMDEKO [Suspect]
     Active Substance: IVACAFTOR\TEZACAFTOR
     Indication: CYSTIC FIBROSIS
     Dosage: TEZACAFTOR 50 MG, IVACAFTOR 75 MG AM; IVACAFTOR 75 MG, PM
     Route: 048
     Dates: start: 20190805, end: 20190922
  8. COPPER [Concomitant]
     Active Substance: COPPER
  9. PROAIR HFA [Concomitant]
     Active Substance: ALBUTEROL SULFATE
  10. MIRALAX [Concomitant]
     Active Substance: POLYETHYLENE GLYCOL 3350
     Dosage: UNK GRAM
  11. CREON [Concomitant]
     Active Substance: PANCRELIPASE AMYLASE\PANCRELIPASE LIPASE\PANCRELIPASE PROTEASE
  12. PROTONIX [OMEPRAZOLE] [Concomitant]
     Active Substance: OMEPRAZOLE

REACTIONS (4)
  - Joint swelling [Recovering/Resolving]
  - Joint stiffness [Not Recovered/Not Resolved]
  - Arthralgia [Recovering/Resolving]
  - Asthenia [Not Recovered/Not Resolved]

NARRATIVE: CASE EVENT DATE: 2019
